FAERS Safety Report 4414356-7 (Version None)
Quarter: 2004Q3

REPORT INFORMATION
  Report Type: 
  Country: None (occurrence: None)
  Receive Date: 20040701
  Receipt Date: 20040305
  Transmission Date: 20050211
  Serious: Yes (Life-Threatening, Hospitalization)
  Sender: FDA-Public Use
  Company Number: VISP-PR-0403S-0101(0)

PATIENT
  Age: 67 Year
  Sex: Male
  Weight: 74.8435 kg

DRUGS (2)
  1. VISIPAQUE [Suspect]
     Indication: DRUG USE FOR UNKNOWN INDICATION
     Dosage: 132 ML, SINGLE DOSE, I.A. (SEE IMAGE)
     Route: 014
     Dates: start: 20040302, end: 20040302
  2. VISIPAQUE [Suspect]
     Indication: DRUG USE FOR UNKNOWN INDICATION
     Dosage: 132 ML, SINGLE DOSE, I.A. (SEE IMAGE)
     Route: 014
     Dates: start: 20040302, end: 20040302

REACTIONS (1)
  - SHOCK [None]
